FAERS Safety Report 11987587 (Version 1)
Quarter: 2016Q1

REPORT INFORMATION
  Report Type: Spontaneous
  Country: US (occurrence: None)
  Receive Date: 20160201
  Receipt Date: 20160201
  Transmission Date: 20160526
  Serious: Yes (Other)
  Sender: FDA-Public Use
  Company Number: None

PATIENT
  Age: 77 Year
  Sex: Female
  Weight: 56.7 kg

DRUGS (1)
  1. DOXYCYCLINE. [Suspect]
     Active Substance: DOXYCYCLINE
     Indication: VIRAL INFECTION
     Dosage: 1 PILL TWICE DAILY
     Dates: start: 20160110, end: 20160116

REACTIONS (3)
  - Dizziness [None]
  - Dizziness postural [None]
  - Vertigo [None]

NARRATIVE: CASE EVENT DATE: 20160110
